FAERS Safety Report 16261601 (Version 1)
Quarter: 2019Q2

REPORT INFORMATION
  Report Type: Spontaneous
  Country: CN (occurrence: CN)
  Receive Date: 20190501
  Receipt Date: 20190501
  Transmission Date: 20190711
  Serious: Yes (Other)
  Sender: FDA-Public Use
  Company Number: PHHY2019CN097265

PATIENT
  Age: 59 Year
  Sex: Female

DRUGS (2)
  1. DANAZOL. [Concomitant]
     Active Substance: DANAZOL
     Indication: PLATELET COUNT DECREASED
     Dosage: UNK
     Route: 048
     Dates: start: 20190307
  2. ELTROMBOPAG [Suspect]
     Active Substance: ELTROMBOPAG
     Indication: PLATELET COUNT DECREASED
     Dosage: UNK
     Route: 048
     Dates: start: 20190307

REACTIONS (7)
  - White blood cell count decreased [Unknown]
  - Pain [Unknown]
  - Helicobacter infection [Unknown]
  - Neutrophil count decreased [Unknown]
  - Nasopharyngitis [Unknown]
  - Pneumonia [Unknown]
  - Hyperhidrosis [Unknown]
